FAERS Safety Report 8479241-2 (Version None)
Quarter: 2012Q2

REPORT INFORMATION
  Report Type: 
  Country: None (occurrence: None)
  Receive Date: 20120629
  Receipt Date: 20120620
  Transmission Date: 20120825
  Serious: Yes (Hospitalization)
  Sender: FDA-Public Use
  Company Number: US-GLAXOSMITHKLINE-A0875827A

PATIENT
  Sex: Male

DRUGS (1)
  1. AVANDAMET [Suspect]
     Indication: DIABETES MELLITUS
     Route: 048
     Dates: start: 20021101

REACTIONS (6)
  - CARDIAC ASSISTANCE DEVICE USER [None]
  - PAIN [None]
  - MYOCARDIAL INFARCTION [None]
  - DYSPNOEA [None]
  - STENT PLACEMENT [None]
  - CORONARY ANGIOPLASTY [None]
